FAERS Safety Report 12474346 (Version 1)
Quarter: 2016Q2

REPORT INFORMATION
  Report Type: Spontaneous
  Country: US (occurrence: None)
  Receive Date: 20160616
  Receipt Date: 20160616
  Transmission Date: 20160815
  Serious: Yes (Hospitalization, Disabling)
  Sender: FDA-Public Use
  Company Number: None

PATIENT
  Age: 23 Year
  Sex: Male
  Weight: 117.94 kg

DRUGS (2)
  1. CLOZARIL [Suspect]
     Active Substance: CLOZAPINE
     Indication: HALLUCINATION, AUDITORY
     Route: 048
     Dates: start: 20140201, end: 20160615
  2. CLOZARIL [Suspect]
     Active Substance: CLOZAPINE
     Indication: SCHIZOPHRENIA
     Route: 048
     Dates: start: 20140201, end: 20160615

REACTIONS (6)
  - Tremor [None]
  - Tardive dyskinesia [None]
  - Diabetes mellitus [None]
  - Somnolence [None]
  - Enuresis [None]
  - Increased appetite [None]

NARRATIVE: CASE EVENT DATE: 20160604
